FAERS Safety Report 10971383 (Version 1)
Quarter: 2015Q1

REPORT INFORMATION
  Report Type: Spontaneous
  Country: US (occurrence: US)
  Receive Date: 20150331
  Receipt Date: 20150331
  Transmission Date: 20150721
  Serious: No
  Sender: FDA-Public Use
  Company Number: US-BAUSCH-BL-2015-003058

PATIENT
  Age: 55 Year
  Sex: Female

DRUGS (3)
  1. ATENOLOL/HCT 50/25 [Concomitant]
     Indication: PRODUCT USED FOR UNKNOWN INDICATION
  2. POLYMYXIN B SULFATE AND TRIMETHOPRIM [Suspect]
     Active Substance: POLYMYXIN B SULFATE\TRIMETHOPRIM SULFATE
     Indication: CORNEAL ABRASION
     Dosage: USED ONLY TWO TIMES
     Route: 047
     Dates: start: 20150211, end: 20150211
  3. ERYTHROMYCIN OPHTHALMIC OINTMENT [Concomitant]
     Indication: PRODUCT USED FOR UNKNOWN INDICATION

REACTIONS (3)
  - Eye pruritus [Recovering/Resolving]
  - Eye irritation [Recovering/Resolving]
  - Eye inflammation [Recovering/Resolving]

NARRATIVE: CASE EVENT DATE: 20150211
